FAERS Safety Report 17326517 (Version 1)
Quarter: 2020Q1

REPORT INFORMATION
  Report Type: Spontaneous
  Country: CN (occurrence: CN)
  Receive Date: 20200127
  Receipt Date: 20200127
  Transmission Date: 20200409
  Serious: Yes (Hospitalization)
  Sender: FDA-Public Use
  Company Number: CN-ASTRAZENECA-2020SE10042

PATIENT
  Age: 19356 Day
  Sex: Male
  Weight: 68 kg

DRUGS (5)
  1. FORXIGA [Suspect]
     Active Substance: DAPAGLIFLOZIN
     Indication: BLOOD GLUCOSE INCREASED
     Route: 048
     Dates: start: 20200110, end: 20200113
  2. INSULIN ASPART [Concomitant]
     Active Substance: INSULIN ASPART
     Dosage: REDUCED DOSE
     Dates: start: 20200110, end: 20200112
  3. FORXIGA [Suspect]
     Active Substance: DAPAGLIFLOZIN
     Indication: BLOOD GLUCOSE INCREASED
     Route: 048
     Dates: start: 20200108, end: 20200110
  4. MAI TE MEI [Concomitant]
     Indication: BLOOD GLUCOSE INCREASED
     Route: 048
     Dates: start: 20200112, end: 20200113
  5. INSULIN ASPART [Concomitant]
     Active Substance: INSULIN ASPART
     Dates: end: 20200110

REACTIONS (1)
  - Diabetic ketoacidosis [Recovered/Resolved]

NARRATIVE: CASE EVENT DATE: 20200113
